FAERS Safety Report 6133578-0 (Version None)
Quarter: 2009Q1

REPORT INFORMATION
  Report Type: 
  Country: None (occurrence: None)
  Receive Date: 20090324
  Receipt Date: 20090310
  Transmission Date: 20090719
  Serious: Yes (Death, Other)
  Sender: FDA-Public Use
  Company Number: MC200900097

PATIENT

DRUGS (4)
  1. ANGIOMAX [Suspect]
     Indication: PERCUTANEOUS CORONARY INTERVENTION
  2. TIROFIBAN (TIROFIBAN) [Suspect]
  3. ABCIXIMAB (ABCIXIMAB) [Suspect]
  4. HEPARIN [Suspect]

REACTIONS (3)
  - CORONARY REVASCULARISATION [None]
  - HAEMORRHAGE [None]
  - MYOCARDIAL INFARCTION [None]
